FAERS Safety Report 11520875 (Version 1)
Quarter: 2015Q3

REPORT INFORMATION
  Report Type: Other
  Country: US (occurrence: US)
  Receive Date: 20150918
  Receipt Date: 20150918
  Transmission Date: 20151125
  Serious: Yes (Other)
  Sender: FDA-Public Use
  Company Number: US-ORIT LABORATORIES LLC-1042075

PATIENT
  Age: 40 Year
  Sex: Female
  Weight: 63.18 kg

DRUGS (9)
  1. NIFEDIPINE. [Concomitant]
     Active Substance: NIFEDIPINE
  2. PREDNISONE. [Concomitant]
     Active Substance: PREDNISONE
  3. LORAZEPAM. [Concomitant]
     Active Substance: LORAZEPAM
  4. RISPERIDONE. [Concomitant]
     Active Substance: RISPERIDONE
  5. PROCRIT [Concomitant]
     Active Substance: ERYTHROPOIETIN
  6. BACTRIM [Concomitant]
     Active Substance: SULFAMETHOXAZOLE\TRIMETHOPRIM
  7. PROGRAF [Concomitant]
     Active Substance: TACROLIMUS\TACROLIMUS ANHYDROUS
  8. MYFORTIC [Concomitant]
     Active Substance: MYCOPHENOLATE SODIUM
  9. ERGOCALCIFEROL. [Suspect]
     Active Substance: ERGOCALCIFEROL
     Indication: BLOOD CALCIUM DECREASED
     Route: 048

REACTIONS (5)
  - Drug interaction [None]
  - Confusional state [Recovered/Resolved]
  - Nausea [Recovered/Resolved]
  - Pruritus [Recovered/Resolved]
  - Therapy change [None]
